FAERS Safety Report 8914204 (Version 2)
Quarter: 2013Q1

REPORT INFORMATION
  Report Type: Spontaneous
  Country: US (occurrence: US)
  Receive Date: 20121119
  Receipt Date: 20130121
  Transmission Date: 20140127
  Serious: No
  Sender: FDA-Public Use
  Company Number: US-009507513-1211USA003303

PATIENT
  Age: 31 Year
  Sex: Female
  Weight: 53.61 kg

DRUGS (2)
  1. NEXPLANON [Suspect]
     Indication: CONTRACEPTION
     Dosage: 1 ROD FOR 3 YEARS
     Route: 059
     Dates: start: 20120607
  2. CLONAZEPAM [Concomitant]
     Dosage: 0.5 MG, HS

REACTIONS (1)
  - Breast discharge [Unknown]
